FAERS Safety Report 6216630-0 (Version None)
Quarter: 2009Q2

REPORT INFORMATION
  Report Type: 
  Country: None (occurrence: None)
  Receive Date: 20090605
  Receipt Date: 20090602
  Transmission Date: 20091009
  Serious: Yes (Life-Threatening)
  Sender: FDA-Public Use
  Company Number: PHEH2009US02714

PATIENT
  Sex: Female

DRUGS (5)
  1. RECLAST [Suspect]
     Dosage: UNK, UNK
     Dates: start: 20090310
  2. SYNTHROID [Concomitant]
  3. NEXIUM [Concomitant]
  4. AMBIEN [Concomitant]
  5. VALIUM [Concomitant]

REACTIONS (3)
  - ADVERSE REACTION [None]
  - APPARENT LIFE THREATENING EVENT [None]
  - MUSCULOSKELETAL STIFFNESS [None]
